FAERS Safety Report 5856786-2 (Version None)
Quarter: 2008Q3

REPORT INFORMATION
  Report Type: 
  Country: None (occurrence: None)
  Receive Date: 20080825
  Receipt Date: 20080813
  Transmission Date: 20090109
  Serious: Yes (Hospitalization)
  Sender: FDA-Public Use
  Company Number: NO-PFIZER INC-2008067415

PATIENT
  Sex: Female

DRUGS (1)
  1. DEPO-PROVERA SUSPENSION/INJ [Suspect]
     Indication: CONTRACEPTION
     Dosage: FREQ:LAST INJECTION
     Route: 030
     Dates: start: 20080101, end: 20080101

REACTIONS (3)
  - CEREBRAL INFARCTION [None]
  - HEADACHE [None]
  - VISUAL IMPAIRMENT [None]
